FAERS Safety Report 15207310 (Version 2)
Quarter: 2018Q3

REPORT INFORMATION
  Report Type: Spontaneous
  Country: IN (occurrence: IN)
  Receive Date: 20180727
  Receipt Date: 20180810
  Transmission Date: 20181010
  Serious: Yes (Death, Life-Threatening, Hospitalization, Other)
  Sender: FDA-Public Use
  Company Number: IN-DRREDDYS-GPV/IND/18/0102233

PATIENT
  Age: 45 Year
  Sex: Male

DRUGS (1)
  1. OFLOXACIN. [Suspect]
     Active Substance: OFLOXACIN
     Indication: DIARRHOEA

REACTIONS (15)
  - Toxic epidermal necrolysis [Fatal]
  - Blood potassium increased [Unknown]
  - Stevens-Johnson syndrome [Fatal]
  - Blood glucose abnormal [Unknown]
  - Neutrophil count increased [Unknown]
  - Protein total decreased [Unknown]
  - White blood cell count increased [Unknown]
  - Blood bicarbonate decreased [Unknown]
  - Blood creatinine increased [Unknown]
  - Red blood cell count decreased [Unknown]
  - Albumin globulin ratio decreased [Unknown]
  - Hypovolaemic shock [Fatal]
  - Haematocrit decreased [Unknown]
  - Blood urea increased [Unknown]
  - Blood albumin decreased [Unknown]
